FAERS Safety Report 23662262 (Version 2)
Quarter: 2024Q1

REPORT INFORMATION
  Report Type: Spontaneous
  Country: BR (occurrence: BR)
  Receive Date: 20240322
  Receipt Date: 20240324
  Transmission Date: 20240410
  Serious: Yes (Hospitalization, Other)
  Sender: FDA-Public Use
  Company Number: BR-STRIDES ARCOLAB LIMITED-2024SP003304

PATIENT
  Age: 43 Year
  Sex: Female

DRUGS (22)
  1. PREDNISOLONE [Suspect]
     Active Substance: PREDNISOLONE
     Indication: Diffuse large B-cell lymphoma stage III
     Dosage: UNK, CYCLICAL; EIGHT CYCLES OF THE R-CHOP REGIMEN
     Route: 065
  2. PREDNISOLONE [Suspect]
     Active Substance: PREDNISOLONE
     Indication: Uterine cancer
  3. ETOPOSIDE [Suspect]
     Active Substance: ETOPOSIDE
     Indication: Diffuse large B-cell lymphoma stage III
     Dosage: UNK, CYCLICAL; FOUR CYCLES OF THE R-ICE PROTOCOL
     Route: 065
  4. ETOPOSIDE [Suspect]
     Active Substance: ETOPOSIDE
     Indication: Uterine cancer
  5. DOXORUBICIN [Suspect]
     Active Substance: DOXORUBICIN
     Indication: Diffuse large B-cell lymphoma stage III
     Dosage: UNK, CYCLICAL; EIGHT CYCLES OF THE R-CHOP REGIMEN
     Route: 065
  6. DOXORUBICIN [Suspect]
     Active Substance: DOXORUBICIN
     Indication: Uterine cancer
  7. RITUXIMAB [Suspect]
     Active Substance: RITUXIMAB
     Indication: Diffuse large B-cell lymphoma stage III
     Dosage: UNK, CYCLICAL; EIGHT CYCLES OF THE R-CHOP REGIMEN
     Route: 065
  8. RITUXIMAB [Suspect]
     Active Substance: RITUXIMAB
     Indication: Uterine cancer
  9. CYCLOPHOSPHAMIDE [Suspect]
     Active Substance: CYCLOPHOSPHAMIDE
     Indication: Diffuse large B-cell lymphoma stage III
     Dosage: UNK, CYCLICAL; EIGHT CYCLES OF THE R-CHOP REGIMEN
     Route: 065
  10. CYCLOPHOSPHAMIDE [Suspect]
     Active Substance: CYCLOPHOSPHAMIDE
     Indication: Uterine cancer
  11. VINCRISTINE [Suspect]
     Active Substance: VINCRISTINE
     Indication: Diffuse large B-cell lymphoma stage III
     Dosage: UNK, CYCLICAL;  EIGHT CYCLES OF THE R-CHOP REGIMEN
     Route: 065
  12. VINCRISTINE [Suspect]
     Active Substance: VINCRISTINE
     Indication: Uterine cancer
  13. IFOSFAMIDE [Suspect]
     Active Substance: IFOSFAMIDE
     Indication: Diffuse large B-cell lymphoma stage III
     Dosage: UNK, CYCLICAL;  FOUR CYCLES OF THE R-ICE PROTOCOL
     Route: 065
  14. IFOSFAMIDE [Suspect]
     Active Substance: IFOSFAMIDE
     Indication: Uterine cancer
  15. CARBOPLATIN [Suspect]
     Active Substance: CARBOPLATIN
     Indication: Diffuse large B-cell lymphoma stage III
     Dosage: UNK, CYCLICAL;  FOUR CYCLES OF THE R-ICE PROTOCOL
     Route: 065
  16. CARBOPLATIN [Suspect]
     Active Substance: CARBOPLATIN
     Indication: Uterine cancer
  17. OXALIPLATIN [Suspect]
     Active Substance: OXALIPLATIN
     Indication: Diffuse large B-cell lymphoma stage III
     Dosage: UNK, CYCLICAL; CYCLICAL (4), GEMOX
     Route: 065
  18. OXALIPLATIN [Suspect]
     Active Substance: OXALIPLATIN
     Indication: Uterine cancer
  19. GEMCITABINE [Suspect]
     Active Substance: GEMCITABINE
     Indication: Diffuse large B-cell lymphoma stage III
     Dosage: UNK, CYCLICAL;  CYCLICAL (4), GEMOX
     Route: 065
  20. GEMCITABINE [Suspect]
     Active Substance: GEMCITABINE
     Indication: Uterine cancer
  21. MESNA [Concomitant]
     Active Substance: MESNA
     Indication: Diffuse large B-cell lymphoma stage III
     Dosage: UNK, CYCLICAL; FOUR CYCLES OF THE R-ICE PROTOCOL
     Route: 065
  22. MESNA [Concomitant]
     Active Substance: MESNA
     Indication: Uterine cancer

REACTIONS (5)
  - Ejection fraction decreased [Recovered/Resolved]
  - Cardiotoxicity [Recovered/Resolved]
  - Cardiac failure [Recovered/Resolved]
  - Drug ineffective [Unknown]
  - Off label use [Unknown]
